FAERS Safety Report 10647888 (Version 2)
Quarter: 2015Q1

REPORT INFORMATION
  Report Type: Spontaneous
  Country: FR (occurrence: FR)
  Receive Date: 20141212
  Receipt Date: 20150206
  Transmission Date: 20150720
  Serious: Yes (Hospitalization)
  Sender: FDA-Public Use
  Company Number: FR-ASTRAZENECA-2014SE94325

PATIENT
  Age: 69 Year
  Sex: Male

DRUGS (8)
  1. BEVITINE [Concomitant]
     Active Substance: THIAMINE
     Indication: VITAMIN B12 DEFICIENCY
  2. GENTAMICINE [Suspect]
     Active Substance: GENTAMICIN
     Indication: ERYSIPELAS
     Route: 042
     Dates: start: 20140613, end: 20140616
  3. SERESTA [Concomitant]
     Active Substance: OXAZEPAM
     Indication: DELIRIUM TREMENS
     Route: 048
     Dates: start: 201406
  4. AUGMENTIN [Suspect]
     Active Substance: AMOXICILLIN\CLAVULANATE POTASSIUM
     Indication: ERYSIPELAS
     Route: 048
     Dates: start: 20140608, end: 20140613
  5. BECILAN [Concomitant]
     Active Substance: PYRIDOXINE
     Indication: VITAMIN B6 DEFICIENCY
  6. INEXIUM [Suspect]
     Active Substance: ESOMEPRAZOLE
     Indication: GASTRITIS
     Route: 048
     Dates: end: 20141028
  7. ORBENINE [Suspect]
     Active Substance: CLOXACILLIN SODIUM
     Indication: ERYSIPELAS
     Route: 048
     Dates: start: 20140613, end: 20140706
  8. EFFEXOR [Concomitant]
     Active Substance: VENLAFAXINE HYDROCHLORIDE
     Indication: DELIRIUM TREMENS
     Dosage: SR, 75 MG DAILY
     Route: 048
     Dates: start: 201406

REACTIONS (10)
  - Erysipelas [Unknown]
  - General physical health deterioration [Unknown]
  - Atrial fibrillation [Unknown]
  - Left ventricular dysfunction [Unknown]
  - Escherichia infection [Unknown]
  - Tubulointerstitial nephritis [Not Recovered/Not Resolved]
  - Anaemia [Unknown]
  - Activated partial thromboplastin time prolonged [Unknown]
  - Oedema peripheral [Unknown]
  - Haematuria [Unknown]

NARRATIVE: CASE EVENT DATE: 201407
